FAERS Safety Report 4993329-X (Version None)
Quarter: 2006Q2

REPORT INFORMATION
  Report Type: 
  Country: None (occurrence: None)
  Receive Date: 20060505
  Receipt Date: 20060428
  Transmission Date: 20061013
  Serious: Yes (Death)
  Sender: FDA-Public Use
  Company Number: 2006CG00771

PATIENT
  Age: 51 Year
  Sex: Male

DRUGS (3)
  1. PROPOFOL [Suspect]
     Indication: ANAESTHESIA
     Route: 065
  2. LIDOCAINE [Suspect]
     Indication: ANAESTHESIA
     Route: 065
  3. TRACRIUM [Suspect]
     Indication: ANAESTHESIA
     Route: 065

REACTIONS (1)
  - HYPERSENSITIVITY [None]
